FAERS Safety Report 5733167-3 (Version None)
Quarter: 2008Q2

REPORT INFORMATION
  Report Type: 
  Country: None (occurrence: None)
  Receive Date: 20080509
  Receipt Date: 20080428
  Transmission Date: 20081010
  Serious: Yes (Death, Other)
  Sender: FDA-Public Use
  Company Number: HQWYE181316JUL04

PATIENT
  Sex: Female

DRUGS (5)
  1. PREMPRO [Suspect]
     Indication: HORMONE REPLACEMENT THERAPY
     Dosage: UNSPECIFIED
     Route: 048
  2. ORTHO-EST [Suspect]
  3. CYCRIN [Suspect]
  4. PREMARIN [Suspect]
     Indication: HORMONE REPLACEMENT THERAPY
  5. PROVERA [Suspect]
     Indication: HORMONE REPLACEMENT THERAPY
     Dosage: UNSPECIFIED
     Route: 048

REACTIONS (1)
  - BREAST CANCER [None]
